FAERS Safety Report 8963713 (Version 1)
Quarter: 2012Q4

REPORT INFORMATION
  Report Type: Report from Study
  Country: US (occurrence: US)
  Receive Date: 20121213
  Receipt Date: 20121213
  Transmission Date: 20130627
  Serious: Yes (Hospitalization)
  Sender: FDA-Public Use
  Company Number: US-ABBOTT-12P-163-0991834-00

PATIENT
  Age: 48 None
  Sex: Female
  Weight: 50.85 kg

DRUGS (17)
  1. HUMIRA PEN [Suspect]
     Indication: CROHN^S DISEASE
     Dosage: One time loading dose
     Route: 058
     Dates: start: 20121002, end: 20121002
  2. HUMIRA PEN [Suspect]
     Indication: COLITIS ULCERATIVE
     Route: 058
     Dates: start: 20121016, end: 20121016
  3. HUMIRA PEN [Suspect]
     Dates: start: 20121030
  4. CALCIUM [Concomitant]
     Indication: PRODUCT USED FOR UNKNOWN INDICATION
  5. DILAUDID [Concomitant]
     Indication: PAIN
  6. MULTIVITAMIN [Concomitant]
     Indication: VITAMIN SUPPLEMENTATION
  7. PREDNISONE [Concomitant]
     Indication: CROHN^S DISEASE
     Route: 048
     Dates: start: 201208, end: 201210
  8. PREDNISONE [Concomitant]
     Indication: COLITIS ULCERATIVE
  9. TOPAMAX [Concomitant]
     Indication: MIGRAINE
  10. VITAMIN C [Concomitant]
     Indication: PRODUCT USED FOR UNKNOWN INDICATION
  11. VITAMIN D [Concomitant]
     Indication: PRODUCT USED FOR UNKNOWN INDICATION
  12. ZOFRAN [Concomitant]
     Indication: NAUSEA
  13. MAXALT [Concomitant]
     Indication: MIGRAINE
  14. BOXTOX [Concomitant]
     Indication: MIGRAINE
  15. VITAMIN A [Concomitant]
     Indication: PRODUCT USED FOR UNKNOWN INDICATION
  16. SELENIUM [Concomitant]
     Indication: PRODUCT USED FOR UNKNOWN INDICATION
  17. VITAMIN E [Concomitant]
     Indication: PRODUCT USED FOR UNKNOWN INDICATION

REACTIONS (25)
  - Laboratory test abnormal [Unknown]
  - Somnolence [Not Recovered/Not Resolved]
  - Influenza like illness [Recovering/Resolving]
  - Abdominal distension [Not Recovered/Not Resolved]
  - Drug ineffective [Not Recovered/Not Resolved]
  - Crohn^s disease [Not Recovered/Not Resolved]
  - Colitis ulcerative [Not Recovered/Not Resolved]
  - Fatigue [Not Recovered/Not Resolved]
  - Asthenopia [Not Recovered/Not Resolved]
  - Abdominal pain [Not Recovered/Not Resolved]
  - Haematochezia [Not Recovered/Not Resolved]
  - Muscular weakness [Not Recovered/Not Resolved]
  - Visual field defect [Not Recovered/Not Resolved]
  - Influenza like illness [Not Recovered/Not Resolved]
  - Paraesthesia [Recovering/Resolving]
  - Abdominal pain [Unknown]
  - Abdominal pain [Unknown]
  - Nausea [Unknown]
  - Gastrointestinal haemorrhage [Not Recovered/Not Resolved]
  - Peripheral embolism [Recovering/Resolving]
  - Paraesthesia [Recovered/Resolved]
  - Influenza like illness [Recovered/Resolved]
  - Visual acuity reduced [Not Recovered/Not Resolved]
  - Visual impairment [Not Recovered/Not Resolved]
  - Insomnia [Unknown]
